FAERS Safety Report 24059280 (Version 1)
Quarter: 2024Q3

REPORT INFORMATION
  Report Type: Spontaneous
  Country: CO (occurrence: CO)
  Receive Date: 20240708
  Receipt Date: 20240708
  Transmission Date: 20241017
  Serious: Yes (Hospitalization)
  Sender: RECORDATI
  Company Number: CO-RECORDATI-2023006555

PATIENT

DRUGS (9)
  1. CYSTAGON [Suspect]
     Active Substance: CYSTEAMINE BITARTRATE
     Indication: Cystinosis
     Dosage: 150 MILLIGRAM, Q6H
     Route: 048
     Dates: start: 201507
  2. CYSTADROPS [Suspect]
     Active Substance: CYSTEAMINE HYDROCHLORIDE
     Indication: Cystinosis
     Dosage: 2 GTT DROPS, Q6H IN VIGIL
     Route: 047
     Dates: start: 201507
  3. ENALAPRIL [Concomitant]
     Active Substance: ENALAPRIL
     Indication: Hypertension
     Dosage: UNK, QD
  4. AMLODIPINE [Concomitant]
     Active Substance: AMLODIPINE BESYLATE
     Indication: Hypertension
     Dosage: UNK, QD
  5. ERYTHROPOIETIN [Concomitant]
     Active Substance: ERYTHROPOIETIN
     Indication: Product used for unknown indication
     Dosage: UNK, QD
  6. OMEPRAZOLE [Concomitant]
     Active Substance: OMEPRAZOLE
     Indication: Prophylaxis
     Dosage: UNK, QD
  7. CALCITRIOL [Concomitant]
     Active Substance: CALCITRIOL
     Indication: Calcium deficiency
     Dosage: 0.50 MICROGRAM, QD
     Route: 048
  8. FOLIC ACID [Concomitant]
     Active Substance: FOLIC ACID
     Indication: Supplementation therapy
     Dosage: 1 MILLIGRAM, QD
     Route: 048
  9. FERROUS SULFATE [Concomitant]
     Active Substance: FERROUS SULFATE
     Indication: Supplementation therapy
     Dosage: 24 DROP, Q12H

REACTIONS (2)
  - Spontaneous bacterial peritonitis [Recovering/Resolving]
  - Generalised oedema [Recovering/Resolving]

NARRATIVE: CASE EVENT DATE: 20230814
